FAERS Safety Report 4596913-0 (Version None)
Quarter: 2005Q1

REPORT INFORMATION
  Report Type: 
  Country: None (occurrence: None)
  Receive Date: 20050228
  Receipt Date: 20041228
  Transmission Date: 20050727
  Serious: Yes (Other)
  Sender: FDA-Public Use
  Company Number: 2005023088

PATIENT
  Sex: Female

DRUGS (2)
  1. CELEBREX [Suspect]
     Indication: ILL-DEFINED DISORDER
  2. WARFARIN SODIUM [Suspect]
     Indication: ILL-DEFINED DISORDER

REACTIONS (4)
  - ARTHRITIS [None]
  - DIFFICULTY IN WALKING [None]
  - JOINT SWELLING [None]
  - PAIN [None]
